FAERS Safety Report 26125985 (Version 1)
Quarter: 2025Q4

REPORT INFORMATION
  Report Type: Spontaneous
  Country: US (occurrence: None)
  Receive Date: 20251204
  Receipt Date: 20251204
  Transmission Date: 20260117
  Serious: No
  Sender: FDA-CTU
  Company Number: None

PATIENT
  Age: 33 Year
  Sex: Male
  Weight: 117 kg

DRUGS (4)
  1. EMGALITY [Suspect]
     Active Substance: GALCANEZUMAB-GNLM
     Dosage: OTHER FREQUENCY : MONTHLY;?
     Route: 058
     Dates: start: 20240101, end: 20240905
  2. VITAMIN B2 [Concomitant]
     Active Substance: RIBOFLAVIN
  3. VITAMIN B12 [Concomitant]
     Active Substance: CYANOCOBALAMIN
  4. MAGNESIUM [Concomitant]
     Active Substance: MAGNESIUM
     Dosage: FREQUENCY : MONTHLY;?
     Route: 058
     Dates: start: 20240101, end: 20240905

REACTIONS (1)
  - Weight increased [None]

NARRATIVE: CASE EVENT DATE: 20240101
